FAERS Safety Report 7227475-7 (Version None)
Quarter: 2011Q1

REPORT INFORMATION
  Report Type: 
  Country: None (occurrence: None)
  Receive Date: 20110114
  Receipt Date: 20110104
  Transmission Date: 20110831
  Serious: Yes (Other)
  Sender: FDA-Public Use
  Company Number: PHHY2011GB00630

PATIENT
  Age: 64 Year
  Sex: Female

DRUGS (11)
  1. FUROSEMIDE [Concomitant]
     Dosage: 7 DF, QD
  2. BISOPROLOL [Concomitant]
     Indication: CARDIAC DISORDER
     Dosage: 1.25 MG, UNK
  3. PARACETAMOL [Suspect]
     Indication: ANALGESIC THERAPY
     Dosage: UNK
     Dates: start: 20101029
  4. LEVOTHYROXINE [Concomitant]
     Dosage: 100 UG, QD
  5. SPIRONOLACTONE [Concomitant]
     Dosage: 25 MG, QD
  6. WARFARIN [Concomitant]
     Indication: CARDIAC DISORDER
     Dosage: 6 MG, UNK
  7. CO-CODAMOL [Suspect]
     Indication: PAIN
  8. RAMIPRIL [Concomitant]
     Dosage: 5 MG, BID
  9. FERROUS SULFATE TAB [Concomitant]
     Dosage: 3 DF, QD
  10. LANSOPRAZOLE [Concomitant]
  11. WARFARIN [Concomitant]
     Indication: HEART VALVE REPLACEMENT

REACTIONS (2)
  - ABDOMINAL PAIN [None]
  - MUSCLE SPASMS [None]
